FAERS Safety Report 18039374 (Version 1)
Quarter: 2020Q3

REPORT INFORMATION
  Report Type: Spontaneous
  Country: FR (occurrence: FR)
  Receive Date: 20200717
  Receipt Date: 20200717
  Transmission Date: 20201103
  Serious: Yes (Hospitalization, Other)
  Sender: FDA-Public Use
  Company Number: FR-AMGEN-FRASP2020113883

PATIENT
  Age: 82 Year
  Sex: Female

DRUGS (1)
  1. VECTIBIX [Suspect]
     Active Substance: PANITUMUMAB
     Indication: ADENOCARCINOMA OF COLON
     Dosage: 408 MILLIGRAM, CYCLICAL
     Route: 042
     Dates: start: 20200605

REACTIONS (1)
  - Small intestine ulcer [Not Recovered/Not Resolved]

NARRATIVE: CASE EVENT DATE: 20200623
